FAERS Safety Report 9115635 (Version 1)
Quarter: 2013Q1

REPORT INFORMATION
  Report Type: Spontaneous
  Country: US (occurrence: US)
  Receive Date: 20130225
  Receipt Date: 20130225
  Transmission Date: 20140127
  Serious: No
  Sender: FDA-Public Use
  Company Number: US-BRISTOL-MYERS SQUIBB COMPANY-16619132

PATIENT
  Age: 58 Year
  Sex: Female
  Weight: 49.89 kg

DRUGS (2)
  1. KENALOG [Suspect]
     Indication: ALOPECIA
     Dosage: INJECTIONS, FOR 8 YEARS, LAST INJECTION: 27APR
  2. LEVOXYL [Concomitant]

REACTIONS (1)
  - Hypoacusis [Unknown]
